FAERS Safety Report 8436878 (Version 3)
Quarter: 2013Q1

REPORT INFORMATION
  Report Type: Spontaneous
  Country: US (occurrence: US)
  Receive Date: 20120302
  Receipt Date: 20130131
  Transmission Date: 20140127
  Serious: No
  Sender: FDA-Public Use
  Company Number: US-PFIZER INC-2012053042

PATIENT
  Age: 58 Year
  Sex: Male
  Weight: 102 kg

DRUGS (4)
  1. VIAGRA [Suspect]
     Indication: ERECTILE DYSFUNCTION
     Dosage: 50 MG, AS NEEDED
     Route: 048
     Dates: start: 20120226
  2. GABAPENTIN [Concomitant]
     Indication: NEUROPATHY PERIPHERAL
     Dosage: UNK
  3. METFORMIN [Concomitant]
     Indication: DIABETES MELLITUS
     Dosage: UNK
  4. NOVOLOG [Concomitant]
     Indication: DIABETES MELLITUS
     Dosage: UNK

REACTIONS (1)
  - Drug ineffective [Unknown]
